FAERS Safety Report 4645581-8 (Version None)
Quarter: 2005Q2

REPORT INFORMATION
  Report Type: 
  Country: None (occurrence: None)
  Receive Date: 20050331
  Receipt Date: 20050119
  Transmission Date: 20051028
  Serious: Yes (Hospitalization)
  Sender: FDA-Public Use
  Company Number: 05P-163-0287276

PATIENT
  Age: 65 Year
  Sex: Female
  Weight: 100.8 kg

DRUGS (14)
  1. HUMIRA [Suspect]
     Indication: RHEUMATOID ARTHRITIS
     Dosage: 40 MG, 1 IN 2 WK, SUBCUTANEOUS
     Route: 058
     Dates: start: 20040801, end: 20050114
  2. NEFEDICAL XL [Concomitant]
  3. MELOXICAM [Concomitant]
  4. PAROXETINE HCL [Concomitant]
  5. LOVASTATIN [Concomitant]
  6. BECLOMETHASONE DIPROPIONATE [Concomitant]
  7. PANTAOPRAZOLE [Concomitant]
  8. IRON [Concomitant]
  9. ASCORBIC ACID [Concomitant]
  10. FOLIC ACID [Concomitant]
  11. OXYBUTYNIN [Concomitant]
  12. MODAFINIL [Concomitant]
  13. METHOTREXATE [Concomitant]
  14. ASPIRIN [Concomitant]

REACTIONS (4)
  - ANAEMIA [None]
  - CHEST PAIN [None]
  - PHARYNGOLARYNGEAL PAIN [None]
  - SINUSITIS [None]
